FAERS Safety Report 6540849-2 (Version None)
Quarter: 2010Q1

REPORT INFORMATION
  Report Type: 
  Country: None (occurrence: None)
  Receive Date: 20100118
  Receipt Date: 20100107
  Transmission Date: 20100710
  Serious: Yes (Other)
  Sender: FDA-Public Use
  Company Number: PHHY2009JP51586

PATIENT
  Age: 36 Year
  Sex: Male

DRUGS (3)
  1. TEGRETOL [Suspect]
     Indication: TRIGEMINAL NEURALGIA
     Dosage: 100 MG DAILY
     Route: 048
  2. TEGRETOL [Suspect]
     Dosage: 200 MG DAILY
     Route: 048
  3. LOXONIN [Concomitant]
     Indication: TRIGEMINAL NEURALGIA
     Route: 048

REACTIONS (1)
  - HYPOACUSIS [None]
